FAERS Safety Report 8772327 (Version 5)
Quarter: 2013Q2

REPORT INFORMATION
  Report Type: Spontaneous
  Country: US (occurrence: US)
  Receive Date: 20120905
  Receipt Date: 20130416
  Transmission Date: 20140414
  Serious: Yes (Hospitalization, Disabling, Other)
  Sender: FDA-Public Use
  Company Number: US-009507513-1205USA00049

PATIENT
  Sex: Female
  Weight: 69.16 kg

DRUGS (4)
  1. FOSAMAX [Suspect]
     Indication: OSTEOPOROSIS
     Dosage: 10 MG, QD
     Route: 048
     Dates: start: 19961016
  2. FOSAMAX [Suspect]
     Indication: OSTEOPOROSIS PROPHYLAXIS
     Dosage: UNK
     Route: 048
     Dates: end: 2006
  3. FOSAMAX [Suspect]
     Indication: OSTEOPOROSIS
     Dosage: 70 MG, QW
     Route: 048
     Dates: start: 20040331
  4. FOSAMAX [Suspect]
     Indication: OSTEOPOROSIS PROPHYLAXIS

REACTIONS (47)
  - Femur fracture [Unknown]
  - Low turnover osteopathy [Unknown]
  - Stress fracture [Unknown]
  - Femur fracture [Unknown]
  - Fibula fracture [Unknown]
  - Cerebrovascular accident [Unknown]
  - Fall [Unknown]
  - Skin graft [Unknown]
  - Burns third degree [Unknown]
  - Hysterectomy [Unknown]
  - Vomiting [Unknown]
  - Nausea [Unknown]
  - Ankle fracture [Unknown]
  - Endodontic procedure [Unknown]
  - Anxiety [Not Recovered/Not Resolved]
  - Stress [Unknown]
  - Aortic aneurysm [Unknown]
  - Cataract [Unknown]
  - Wrist surgery [Unknown]
  - Cataract [Unknown]
  - Photopsia [Unknown]
  - Rhinitis allergic [Not Recovered/Not Resolved]
  - Intermittent claudication [Unknown]
  - Hearing aid user [Unknown]
  - Dehydration [Unknown]
  - Haemorrhoids [Not Recovered/Not Resolved]
  - Lumbar spinal stenosis [Unknown]
  - Cervical spinal stenosis [Unknown]
  - Skin disorder [Unknown]
  - Solar lentigo [Unknown]
  - Carotid artery disease [Unknown]
  - Osteoarthritis [Unknown]
  - Onychomycosis [Unknown]
  - Bronchitis [Unknown]
  - Bone cyst [Unknown]
  - Arthropathy [Unknown]
  - Myositis [Unknown]
  - Soft tissue mass [Unknown]
  - Spinal osteoarthritis [Unknown]
  - Pruritus [Unknown]
  - Flatulence [Not Recovered/Not Resolved]
  - Diarrhoea [Unknown]
  - Dizziness [Unknown]
  - Vertigo [Unknown]
  - Pain in extremity [Unknown]
  - Myalgia [Unknown]
  - Drug hypersensitivity [Unknown]
